FAERS Safety Report 7289588-3 (Version None)
Quarter: 2011Q1

REPORT INFORMATION
  Report Type: 
  Country: None (occurrence: None)
  Receive Date: 20110201
  Receipt Date: 20110112
  Transmission Date: 20110831
  Serious: Yes (Other)
  Sender: FDA-Public Use
  Company Number: DSU-2011-00289

PATIENT
  Age: 51 Year
  Sex: Male
  Weight: 98.8842 kg

DRUGS (3)
  1. BENICAR [Suspect]
     Indication: HYPERTENSION
     Dosage: 20 MG (20 MG,QD),PER ORAL ; 10 MG (10 MG,1/2 OF 20MG TABLETS QD),PER ORAL
     Route: 048
     Dates: start: 20110108
  2. BENICAR [Suspect]
     Indication: HYPERTENSION
     Dosage: 20 MG (20 MG,QD),PER ORAL ; 10 MG (10 MG,1/2 OF 20MG TABLETS QD),PER ORAL
     Route: 048
     Dates: start: 20101101, end: 20100101
  3. ATIVAN [Concomitant]

REACTIONS (4)
  - KNEE OPERATION [None]
  - DIZZINESS [None]
  - SOMNOLENCE [None]
  - DISTURBANCE IN ATTENTION [None]
